FAERS Safety Report 10507863 (Version 1)
Quarter: 2014Q4

REPORT INFORMATION
  Report Type: Spontaneous
  Country: US (occurrence: US)
  Receive Date: 20141009
  Receipt Date: 20141009
  Transmission Date: 20150528
  Serious: No
  Sender: FDA-Public Use
  Company Number: US-009507513-1410USA002944

PATIENT
  Sex: Female

DRUGS (1)
  1. JANUVIA [Suspect]
     Active Substance: SITAGLIPTIN PHOSPHATE
     Indication: DIABETES MELLITUS MANAGEMENT
     Dosage: 100 MG/ ONCE DAILY
     Route: 048
     Dates: start: 201409

REACTIONS (3)
  - Nasal congestion [Unknown]
  - Blood glucose abnormal [Unknown]
  - Headache [Unknown]

NARRATIVE: CASE EVENT DATE: 201410
